FAERS Safety Report 16562098 (Version 1)
Quarter: 2019Q3

REPORT INFORMATION
  Report Type: Spontaneous
  Country: CA (occurrence: CA)
  Receive Date: 20190711
  Receipt Date: 20190711
  Transmission Date: 20191004
  Serious: Yes (Hospitalization, Other)
  Sender: FDA-Public Use
  Company Number: CA-TEVA-2019-CA-1073554

PATIENT
  Age: 53 Year
  Sex: Female
  Weight: 93 kg

DRUGS (15)
  1. ACETAMINOPHEN/TRAMADOL [Concomitant]
     Active Substance: ACETAMINOPHEN\TRAMADOL
  2. UBIDECARENONE [Concomitant]
     Active Substance: UBIDECARENONE
  3. NEXIUM [Concomitant]
     Active Substance: ESOMEPRAZOLE MAGNESIUM
  4. PHENAZOPYRIDINE HCL [Concomitant]
     Active Substance: PHENAZOPYRIDINE HYDROCHLORIDE
  5. ROSUVASTATIN. [Concomitant]
     Active Substance: ROSUVASTATIN
  6. MAGNESIUM [Concomitant]
     Active Substance: MAGNESIUM
  7. NASONEX [Concomitant]
     Active Substance: MOMETASONE FUROATE
  8. LIRAGLUTIDE [Suspect]
     Active Substance: LIRAGLUTIDE
     Indication: TYPE 2 DIABETES MELLITUS
     Dosage: 1.8 MILLIGRAM DAILY;
     Route: 058
  9. METFORMIN [Suspect]
     Active Substance: METFORMIN HYDROCHLORIDE
     Indication: TYPE 2 DIABETES MELLITUS
     Dosage: 1000 MILLIGRAM DAILY;
     Route: 048
  10. ADVAIR HFA [Concomitant]
     Active Substance: FLUTICASONE PROPIONATE\SALMETEROL XINAFOATE
  11. EPA-DHA [Concomitant]
     Route: 065
  12. ASCORBIC ACID (VITAMIN C) [Concomitant]
     Active Substance: ASCORBIC ACID
  13. EPA-DHA [Concomitant]
     Route: 065
  14. DIAMICRON [Suspect]
     Active Substance: GLICLAZIDE
     Indication: TYPE 2 DIABETES MELLITUS
     Dosage: 30 MILLIGRAM DAILY;
     Route: 048
  15. MYRBETRIQ [Concomitant]
     Active Substance: MIRABEGRON

REACTIONS (1)
  - Hypoglycaemic unconsciousness [Recovered/Resolved]
